FAERS Safety Report 23758821 (Version 1)
Quarter: 2024Q2

REPORT INFORMATION
  Report Type: Other
  Country: US (occurrence: None)
  Receive Date: 20240418
  Receipt Date: 20240418
  Transmission Date: 20240715
  Serious: Yes (Other)
  Sender: FDA-Public Use
  Company Number: US-ROCHE-3462531

PATIENT
  Age: 65 Year
  Sex: Female

DRUGS (4)
  1. BEVACIZUMAB [Suspect]
     Active Substance: BEVACIZUMAB
     Indication: Endometrial cancer metastatic
     Dosage: EIGHT CYCLES
     Route: 065
  2. DOXORUBICIN [Concomitant]
     Active Substance: DOXORUBICIN
     Indication: Endometrial cancer metastatic
     Dosage: EIGHT CYCLES
  3. PEMBROLIZUMAB [Concomitant]
     Active Substance: PEMBROLIZUMAB
     Indication: Endometrial cancer metastatic
  4. LENVATINIB [Concomitant]
     Active Substance: LENVATINIB
     Indication: Endometrial cancer metastatic

REACTIONS (3)
  - Acute kidney injury [Not Recovered/Not Resolved]
  - Proteinuria [Unknown]
  - Hypertension [Unknown]
